FAERS Safety Report 5361020-6 (Version None)
Quarter: 2007Q2

REPORT INFORMATION
  Report Type: 
  Country: None (occurrence: None)
  Receive Date: 20070618
  Receipt Date: 20070610
  Transmission Date: 20071010
  Serious: Yes (Other)
  Sender: FDA-Public Use
  Company Number: US-PFIZER INC-2007047260

PATIENT
  Sex: Female
  Weight: 77.1 kg

DRUGS (3)
  1. SERTRALINE [Suspect]
     Indication: ANXIETY
     Route: 048
  2. SERTRALINE [Suspect]
     Indication: PANIC ATTACK
  3. AVALIDE [Concomitant]

REACTIONS (3)
  - ANXIETY [None]
  - STRESS AT WORK [None]
  - TOOTH EXTRACTION [None]
